FAERS Safety Report 11781452 (Version 1)
Quarter: 2015Q4

REPORT INFORMATION
  Report Type: Spontaneous
  Country: IT (occurrence: IT)
  Receive Date: 20151126
  Receipt Date: 20151126
  Transmission Date: 20160305
  Serious: Yes (Other)
  Sender: FDA-Public Use
  Company Number: IT-JNJFOC-20151122649

PATIENT
  Age: 75 Year
  Sex: Male

DRUGS (2)
  1. CHLORTALIDONE [Suspect]
     Active Substance: CHLORTHALIDONE
     Indication: HYPERTENSION
     Route: 048
     Dates: start: 20140327, end: 20140831
  2. ZYTIGA [Suspect]
     Active Substance: ABIRATERONE ACETATE
     Indication: PROSTATE CANCER
     Route: 048
     Dates: start: 20140327, end: 20140831

REACTIONS (1)
  - Hypokalaemia [Recovered/Resolved]

NARRATIVE: CASE EVENT DATE: 20140831
